FAERS Safety Report 10079798 (Version 1)
Quarter: 2014Q2

REPORT INFORMATION
  Report Type: Spontaneous
  Country: NO (occurrence: NO)
  Receive Date: 20140415
  Receipt Date: 20140415
  Transmission Date: 20141212
  Serious: Yes (Other)
  Sender: FDA-Public Use
  Company Number: NO-GLAXOSMITHKLINE-B0985712A

PATIENT
  Age: 31 Year
  Sex: Male

DRUGS (6)
  1. ZOVIRAX [Suspect]
     Indication: PRODUCT USED FOR UNKNOWN INDICATION
     Route: 065
  2. ALEMTUZUMAB [Suspect]
     Indication: MULTIPLE SCLEROSIS
     Route: 042
     Dates: start: 20140319
  3. ALEMTUZUMAB [Suspect]
     Indication: MULTIPLE SCLEROSIS
     Route: 042
     Dates: start: 20140317, end: 20140317
  4. SOLU-MEDROL [Concomitant]
  5. CETIRIZINE [Concomitant]
  6. PARACETAMOL [Concomitant]

REACTIONS (3)
  - Epilepsy [Recovered/Resolved]
  - Drug interaction [Recovered/Resolved]
  - Generalised tonic-clonic seizure [Recovered/Resolved]
